FAERS Safety Report 9569342 (Version 1)
Quarter: 2013Q3

REPORT INFORMATION
  Report Type: Spontaneous
  Country: US (occurrence: US)
  Receive Date: 20130930
  Receipt Date: 20130930
  Transmission Date: 20140515
  Serious: No
  Sender: FDA-Public Use
  Company Number: US-AMGEN-USASP2013058246

PATIENT
  Age: 52 Year
  Sex: Female
  Weight: 58.96 kg

DRUGS (12)
  1. ENBREL [Suspect]
     Indication: PRODUCT USED FOR UNKNOWN INDICATION
     Dosage: 50 MG, QWK
     Route: 058
  2. CYMBALTA [Concomitant]
     Dosage: 60 MG, UNK
  3. ULTRAM                             /00599202/ [Concomitant]
     Dosage: 50 MG, UNK
  4. METHOTREXATE [Concomitant]
     Dosage: 2.5 MG, UNK
  5. PATANASE [Concomitant]
     Dosage: 0.6 %, UNK
  6. FLONASE                            /00908302/ [Concomitant]
     Dosage: 0.05 %, UNK
  7. MOBIC [Concomitant]
     Dosage: 7.5 MG, UNK
  8. FISH OIL [Concomitant]
     Dosage: UNK
  9. CALCIUM [Concomitant]
     Dosage: 500 UNK, UNK
  10. OSTEO BI-FLEX                      /01431201/ [Concomitant]
     Dosage: UNK
  11. FOLIC ACID [Concomitant]
     Dosage: UNK
  12. VITAMIN D3 [Concomitant]
     Dosage: 10000 UNIT, UNK

REACTIONS (1)
  - Pain [Unknown]
